FAERS Safety Report 7315339-X (Version None)
Quarter: 2011Q1

REPORT INFORMATION
  Report Type: 
  Country: None (occurrence: None)
  Receive Date: 20110225
  Receipt Date: 20110223
  Transmission Date: 20110831
  Serious: Yes (Death, Hospitalization)
  Sender: FDA-Public Use
  Company Number: CR-B.I. PHARMACEUTICALS,INC./RIDGEFIELD-2011-MX-00042MX

PATIENT
  Age: 75 Year
  Sex: Male
  Weight: 75 kg

DRUGS (4)
  1. AMLODIPINE [Concomitant]
     Indication: HYPERTENSION
     Dosage: 5 MG
     Route: 048
     Dates: start: 20000101, end: 20110219
  2. SECOTEX OCAS [Suspect]
     Indication: PROSTATISM
     Dosage: 0.4 MG
     Route: 048
     Dates: start: 20110219, end: 20110219
  3. ELEQUINE [Suspect]
     Dosage: 500 MG
     Route: 048
     Dates: start: 20110219, end: 20110219
  4. ENALAPRIL MALEATE [Concomitant]
     Indication: HYPERTENSION
     Dosage: 20 MG
     Route: 048
     Dates: start: 20000101, end: 20110219

REACTIONS (3)
  - ARRHYTHMIA [None]
  - MYOCARDIAL INFARCTION [None]
  - PRESYNCOPE [None]
